FAERS Safety Report 4297491-6 (Version None)
Quarter: 2004Q1

REPORT INFORMATION
  Report Type: 
  Country: None (occurrence: None)
  Receive Date: 20040218
  Receipt Date: 20040205
  Transmission Date: 20041129
  Serious: Yes (Death)
  Sender: FDA-Public Use
  Company Number: CH-GLAXOSMITHKLINE-B0322373A

PATIENT
  Age: 14 Year
  Sex: Female

DRUGS (4)
  1. SEREVENT [Suspect]
     Indication: ASTHMA
     Route: 055
     Dates: start: 20021001, end: 20021002
  2. SERETIDE [Suspect]
     Indication: ASTHMA
     Route: 055
     Dates: start: 20021002, end: 20021002
  3. ACETYLCYSTEINE [Concomitant]
     Indication: ASTHMA
  4. VENTOLIN [Concomitant]
     Indication: ASTHMA
     Route: 055

REACTIONS (4)
  - ASTHMA [None]
  - CYANOSIS [None]
  - DEATH [None]
  - SHOCK [None]
